FAERS Safety Report 7530982-0 (Version None)
Quarter: 2011Q2

REPORT INFORMATION
  Report Type: 
  Country: None (occurrence: None)
  Receive Date: 20110608
  Receipt Date: 20100921
  Transmission Date: 20111010
  Serious: Yes (Hospitalization, Other)
  Sender: FDA-Public Use
  Company Number: US-BAYER-201032544NA

PATIENT
  Age: 42 Year
  Sex: Female
  Weight: 61.224 kg

DRUGS (16)
  1. FLUOXETINE HCL [Concomitant]
     Indication: PRODUCT USED FOR UNKNOWN INDICATION
     Dosage: UNK
     Dates: start: 20060101
  2. LISINOPRIL [Concomitant]
  3. DROSPIRENONE AND ETHINYL ESTRADIOL [Suspect]
     Indication: PRODUCT USED FOR UNKNOWN INDICATION
     Route: 048
  4. MAXALT [Concomitant]
     Indication: MIGRAINE
     Dosage: 10 MG, PRN
     Route: 048
     Dates: start: 20050101, end: 20100101
  5. NABUMETONE [Concomitant]
     Indication: PRODUCT USED FOR UNKNOWN INDICATION
     Dosage: 500 UNK, UNK
     Route: 048
     Dates: start: 20061002
  6. TOPAMAX [Concomitant]
     Indication: PRODUCT USED FOR UNKNOWN INDICATION
     Dosage: 50 MG, BID
     Route: 048
  7. PROZAC [Concomitant]
     Dosage: 40 MG, CONT
     Route: 048
  8. YASMIN [Suspect]
     Indication: PREMENSTRUAL SYNDROME
     Route: 048
     Dates: start: 20060907, end: 20061001
  9. PROZAC [Concomitant]
     Dosage: 20 MG, CONT
     Route: 048
  10. YAZ [Suspect]
     Indication: PREMENSTRUAL SYNDROME
     Route: 048
     Dates: start: 20060907, end: 20061001
  11. CITALOPRAM HYDROBROMIDE [Concomitant]
     Indication: PRODUCT USED FOR UNKNOWN INDICATION
     Dosage: 20 MG, CONT
     Route: 048
     Dates: start: 20050101
  12. FEXOFENADINE [Concomitant]
     Indication: PRODUCT USED FOR UNKNOWN INDICATION
     Dosage: UNK
     Dates: start: 20050101
  13. MEDROXYPROGESTERONE [Concomitant]
     Indication: PRODUCT USED FOR UNKNOWN INDICATION
     Dosage: UNK
     Dates: start: 20070601
  14. PROPOXYPHENE NAPSYLATE W/PARACETAMOL [Concomitant]
     Indication: PRODUCT USED FOR UNKNOWN INDICATION
     Dosage: UNK
     Route: 048
     Dates: start: 20060412
  15. TRIAMTERENE AND HYDROCHLOROTHIAZIDE [Concomitant]
  16. GABAPENTIN [Concomitant]

REACTIONS (11)
  - HEPATIC ADENOMA [None]
  - EMBOLISM ARTERIAL [None]
  - PULMONARY EMBOLISM [None]
  - MYOCARDIAL INFARCTION [None]
  - CEREBRAL HAEMORRHAGE [None]
  - GALLBLADDER DISORDER [None]
  - BENIGN HEPATIC NEOPLASM [None]
  - THROMBOPHLEBITIS [None]
  - CEREBRAL THROMBOSIS [None]
  - HYPERTENSION [None]
  - DEEP VEIN THROMBOSIS [None]
